FAERS Safety Report 8242128 (Version 7)
Quarter: 2014Q2

REPORT INFORMATION
  Report Type: Report from Study
  Country: US (occurrence: US)
  Receive Date: 20111114
  Receipt Date: 20140526
  Transmission Date: 20141212
  Serious: Yes (Hospitalization)
  Sender: FDA-Public Use
  Company Number: US-BIOGENIDEC-2011BI042463

PATIENT
  Age: 35 Year
  Sex: Female

DRUGS (6)
  1. TYSABRI [Suspect]
     Indication: MULTIPLE SCLEROSIS
     Route: 042
     Dates: start: 20070207, end: 20120501
  2. WELLBUTRIN [Concomitant]
  3. LITHIUM CARBONATE [Concomitant]
  4. SYNTHROID [Concomitant]
  5. PROTONIX [Concomitant]
  6. ANUSOL [Concomitant]

REACTIONS (12)
  - Rectal haemorrhage [Unknown]
  - Meningitis viral [Recovered/Resolved]
  - Haemorrhage [Recovered/Resolved]
  - Incontinence [Not Recovered/Not Resolved]
  - Fatigue [Unknown]
  - Menstrual disorder [Not Recovered/Not Resolved]
  - Decreased appetite [Recovered/Resolved]
  - Peripheral swelling [Recovered/Resolved]
  - Muscle spasms [Recovered/Resolved]
  - Insomnia [Recovered/Resolved]
  - Psoriasis [Not Recovered/Not Resolved]
  - Deafness unilateral [Not Recovered/Not Resolved]
